FAERS Safety Report 8121368-9 (Version None)
Quarter: 2012Q1

REPORT INFORMATION
  Report Type: 
  Country: None (occurrence: None)
  Receive Date: 20120208
  Receipt Date: 20120201
  Transmission Date: 20120608
  Serious: Yes (Death, Hospitalization)
  Sender: FDA-Public Use
  Company Number: TR-CELGENEUS-161-C5013-12020051

PATIENT

DRUGS (4)
  1. DEFERASIROX [Concomitant]
     Dosage: 2000 MILLIGRAM
     Route: 065
     Dates: start: 20100610
  2. LENALIDOMIDE [Suspect]
     Indication: MYELOFIBROSIS
     Dosage: 10 MILLIGRAM
     Route: 048
     Dates: start: 20111201, end: 20120118
  3. METFORMIN HCL [Concomitant]
     Indication: DIABETES MELLITUS
     Dosage: 1000 MILLIGRAM
     Route: 065
     Dates: start: 20110303
  4. INSULIN [Concomitant]
     Indication: DIABETES MELLITUS
     Route: 065
     Dates: start: 20110215

REACTIONS (2)
  - SEPSIS [None]
  - DIABETIC FOOT [None]
